FAERS Safety Report 10059688 (Version 2)
Quarter: 2014Q2

REPORT INFORMATION
  Report Type: Spontaneous
  Country: US (occurrence: US)
  Receive Date: 20140404
  Receipt Date: 20140516
  Transmission Date: 20141212
  Serious: No
  Sender: FDA-Public Use
  Company Number: US-PFIZER INC-2014093302

PATIENT
  Age: 63 Year
  Sex: Female
  Weight: 92.52 kg

DRUGS (7)
  1. XELJANZ [Suspect]
     Indication: RHEUMATOID ARTHRITIS
     Dosage: 5 MG, DAILY
     Route: 048
     Dates: start: 20140324
  2. CALCIUM [Concomitant]
  3. PREDNISONE [Concomitant]
  4. VITAMIN D [Concomitant]
  5. IBUPROFEN [Concomitant]
  6. VITAMIN B COMPLEX [Concomitant]
  7. VITAMIN B-12 [Concomitant]

REACTIONS (1)
  - Headache [Recovering/Resolving]
